FAERS Safety Report 8150642 (Version 4)
Quarter: 2013Q3

REPORT INFORMATION
  Report Type: Spontaneous
  Country: US (occurrence: US)
  Receive Date: 20110922
  Receipt Date: 20130730
  Transmission Date: 20140515
  Serious: Yes (Other)
  Sender: FDA-Public Use
  Company Number: US-ASTRAZENECA-2011SE12714

PATIENT
  Age: 31 Year
  Sex: Male
  Weight: 94.3 kg

DRUGS (12)
  1. SEROQUEL [Suspect]
     Route: 048
     Dates: start: 200603
  2. LEXAPRO [Concomitant]
     Dates: start: 200603
  3. MORPHINE PCA [Concomitant]
     Dates: start: 200603
  4. BENADRYL [Concomitant]
     Dates: start: 200603
  5. PHENERGAN [Concomitant]
     Dosage: 12.5 MG TO 25 MG
     Dates: start: 200603
  6. HALDOL [Concomitant]
  7. COGENTIN [Concomitant]
  8. EFFEXOR [Concomitant]
     Indication: MENTAL DISORDER
  9. CYMBALTA [Concomitant]
  10. GEODON [Concomitant]
  11. TRAZODONE [Concomitant]
     Indication: INSOMNIA
  12. GEMFIBROZIL [Concomitant]

REACTIONS (3)
  - Pancreatitis [Unknown]
  - Diabetic coma [Unknown]
  - Type 2 diabetes mellitus [Unknown]
